FAERS Safety Report 4641734-3 (Version None)
Quarter: 2005Q2

REPORT INFORMATION
  Report Type: 
  Country: None (occurrence: None)
  Receive Date: 20050420
  Receipt Date: 20050404
  Transmission Date: 20051028
  Serious: Yes (Death)
  Sender: FDA-Public Use
  Company Number: 430006L05USA

PATIENT
  Age: 45 Year

DRUGS (16)
  1. MITOXANTRONE [Suspect]
     Indication: LYMPHOMA
     Dosage: SEE IMAGE
     Route: 042
  2. FLUDARABINE PHOSPHATE [Suspect]
     Indication: LYMPHOMA
     Dosage: 75 MG/M2, 1 IN 1 CYCLE, INTRAVENOUS
     Route: 042
  3. DEXAMETHASONE [Suspect]
     Indication: LYMPHOMA
     Dosage: SEE IMAGE
     Route: 048
  4. RITUXIMAB (RITUXIMAB) [Suspect]
     Indication: LYMPHOMA
     Dosage: 750 MG/M2, 1 IN 1 CYCLE, INTRAVENOUS
     Route: 042
  5. CYCLOPHOSPHAMIDE [Suspect]
     Indication: LYMPHOMA
     Dosage: 750 MG/M2, 1 IN 1 DAYS, INTRAVENOUS
     Route: 042
  6. DOXORUBICIN (DOXORUBICIN) [Suspect]
     Indication: LYMPHOMA
     Dosage: INTRAVENOUS
     Route: 042
  7. VINCRISTINE [Suspect]
     Indication: LYMPHOMA
     Dosage: SEE IMAGE
     Route: 042
  8. VINCRISTINE [Suspect]
     Indication: LYMPHOMA
     Dosage: SEE IMAGE
     Route: 042
  9. BLEOMYCIN [Suspect]
     Indication: LYMPHOMA
     Dosage: SEE IMAGE
     Route: 042
  10. BLEOMYCIN [Suspect]
     Indication: LYMPHOMA
     Dosage: SEE IMAGE
     Route: 042
  11. ETOPOSIDE [Suspect]
     Indication: LYMPHOMA
     Dosage: 40 MG/M2, 1 IN 1 DAYS, INTRAVENOUS
     Route: 042
  12. METHYLPREDNISOLONE [Suspect]
     Indication: LYMPHOMA
     Dosage: 500, 1 IN 1 DAYS, INTRAVENOUS
     Route: 042
  13. CYTARABINE [Suspect]
     Indication: LYMPHOMA
     Dosage: 2000 MG/M2, 1 IN 2 HR, INTRAVENOUS
     Route: 042
  14. CISPLATIN [Suspect]
     Indication: LYMPHOMA
     Dosage: INTRAVENOUS
     Route: 042
  15. PROCARBAZINE (PROCARBAZINE) [Suspect]
     Indication: LYMPHOMA
     Dosage: 100 MG/M2, 1 IN 1 DAYS, ORAL
     Route: 048
  16. PREDNISONE [Suspect]
     Indication: LYMPHOMA
     Dosage: 100, 1 IN 1 DAYS, ORAL
     Route: 048

REACTIONS (2)
  - MYELODYSPLASTIC SYNDROME [None]
  - REFRACTORY ANAEMIA WITH AN EXCESS OF BLASTS [None]
